FAERS Safety Report 8822370 (Version 1)
Quarter: 2012Q4

REPORT INFORMATION
  Report Type: 
  Country: IE (occurrence: IE)
  Receive Date: 20121003
  Receipt Date: 20121003
  Transmission Date: 20130627
  Serious: Yes (Other)
  Sender: FDA-Public Use
  Company Number: IE-MILLENNIUM PHARMACEUTICALS, INC.-2012-06842

PATIENT

DRUGS (5)
  1. VELCADE [Suspect]
     Indication: MULTIPLE MYELOMA
     Dosage: 2.7 mg, UNK
     Route: 042
     Dates: start: 20120529
  2. VALTREX [Concomitant]
     Dosage: 500 mg, bid
  3. ZOTON [Concomitant]
  4. FLUCONAZOLE [Concomitant]
     Dosage: 50 mg, UNK
  5. DEXAMETHASONE [Concomitant]

REACTIONS (2)
  - Peripheral coldness [Not Recovered/Not Resolved]
  - Hypoaesthesia [Not Recovered/Not Resolved]
